FAERS Safety Report 23406845 (Version 2)
Quarter: 2024Q4

REPORT INFORMATION
  Report Type: Spontaneous
  Country: US (occurrence: US)
  Receive Date: 20240116
  Receipt Date: 20241120
  Transmission Date: 20250115
  Serious: No
  Sender: ELI LILLY AND COMPANY
  Company Number: US-ELI_LILLY_AND_COMPANY-US202401007703

PATIENT
  Age: 44 Year
  Sex: Female

DRUGS (8)
  1. MOUNJARO [Suspect]
     Active Substance: TIRZEPATIDE
     Indication: Diabetes mellitus
     Dosage: 15 MG, UNKNOWN
     Route: 058
     Dates: start: 202311
  2. MOUNJARO [Suspect]
     Active Substance: TIRZEPATIDE
     Indication: Diabetes mellitus
     Dosage: 15 MG, UNKNOWN
     Route: 058
     Dates: start: 202311
  3. MOUNJARO [Suspect]
     Active Substance: TIRZEPATIDE
     Indication: Diabetes mellitus
     Dosage: 15 MG, UNKNOWN
     Route: 058
     Dates: start: 202311
  4. MOUNJARO [Suspect]
     Active Substance: TIRZEPATIDE
     Indication: Diabetes mellitus
     Dosage: 15 MG, UNKNOWN
     Route: 058
     Dates: start: 202311
  5. NOVOLOG [Concomitant]
     Active Substance: INSULIN ASPART
     Indication: Type 2 diabetes mellitus
     Dosage: 22 U, EACH MORNING
     Route: 065
  6. NOVOLOG [Concomitant]
     Active Substance: INSULIN ASPART
     Dosage: 25 U, DAILY (AT LUNCH)
     Route: 065
  7. NOVOLOG [Concomitant]
     Active Substance: INSULIN ASPART
     Dosage: 35 U, EACH EVENING
     Route: 065
  8. TRESIBA [Concomitant]
     Active Substance: INSULIN DEGLUDEC
     Indication: Type 2 diabetes mellitus
     Dosage: 70 U, EACH EVENING

REACTIONS (3)
  - Blood glucose decreased [Unknown]
  - Nausea [Recovered/Resolved]
  - Decreased appetite [Unknown]

NARRATIVE: CASE EVENT DATE: 20231101
